FAERS Safety Report 5692497-4 (Version None)
Quarter: 2008Q2

REPORT INFORMATION
  Report Type: 
  Country: None (occurrence: None)
  Receive Date: 20080402
  Receipt Date: 20080326
  Transmission Date: 20081010
  Serious: Yes (Death)
  Sender: FDA-Public Use
  Company Number: TH-BAXTER-2008BH002819

PATIENT
  Sex: Male

DRUGS (1)
  1. DIANEAL [Suspect]
     Indication: DIALYSIS
     Route: 033
     Dates: end: 20080326

REACTIONS (1)
  - SEPSIS [None]
